FAERS Safety Report 23082398 (Version 1)
Quarter: 2023Q4

REPORT INFORMATION
  Report Type: Report from Study
  Country: CA (occurrence: CA)
  Receive Date: 20231019
  Receipt Date: 20231019
  Transmission Date: 20240110
  Serious: Yes (Hospitalization, Other)
  Sender: FDA-Public Use
  Company Number: CA-JNJFOC-20220932654

PATIENT
  Age: 28 Year
  Sex: Female
  Weight: 58.9 kg

DRUGS (2)
  1. STELARA [Suspect]
     Active Substance: USTEKINUMAB
     Indication: Crohn^s disease
     Dosage: EXPIRY: 01-AUG-2025, MAR-2026
     Route: 058
  2. STELARA [Suspect]
     Active Substance: USTEKINUMAB
     Route: 058

REACTIONS (2)
  - Incision site abscess [Recovered/Resolved]
  - Small intestinal resection [Recovering/Resolving]

NARRATIVE: CASE EVENT DATE: 20221021
